FAERS Safety Report 10233641 (Version 1)
Quarter: 2014Q2

REPORT INFORMATION
  Report Type: Report from Study
  Country: US (occurrence: US)
  Receive Date: 20140612
  Receipt Date: 20140612
  Transmission Date: 20141212
  Serious: Yes (Other)
  Sender: FDA-Public Use
  Company Number: US-ABBVIE-14P-163-1244224-00

PATIENT
  Age: 60 Year
  Sex: Female
  Weight: 63.56 kg

DRUGS (8)
  1. HUMIRA [Suspect]
     Indication: CROHN^S DISEASE
     Dosage: ONCE
     Dates: start: 20140502, end: 20140502
  2. HUMIRA [Suspect]
     Dosage: ONCE
     Dates: start: 20140516, end: 20140516
  3. HUMIRA [Suspect]
     Dates: start: 20140530, end: 20140530
  4. IMURAN [Concomitant]
     Indication: CROHN^S DISEASE
  5. VITAMIN D [Concomitant]
     Indication: VITAMIN SUPPLEMENTATION
  6. DOXEPIN [Concomitant]
     Indication: DEPRESSION
  7. CITALOPRAM [Concomitant]
     Indication: DEPRESSION
  8. VALIUM [Concomitant]
     Indication: ANXIETY

REACTIONS (13)
  - Blood pressure decreased [Unknown]
  - Dyspnoea [Unknown]
  - Blood potassium decreased [Unknown]
  - Chest discomfort [Recovered/Resolved]
  - Throat irritation [Recovered/Resolved]
  - Dysphagia [Recovered/Resolved]
  - Hypersensitivity [Recovered/Resolved]
  - Respiratory distress [Recovered/Resolved]
  - Chest discomfort [Recovered/Resolved]
  - Throat irritation [Recovered/Resolved]
  - Dysphagia [Recovered/Resolved]
  - Chest discomfort [Recovered/Resolved]
  - Throat irritation [Recovered/Resolved]
